FAERS Safety Report 9307628 (Version 1)
Quarter: 2013Q2

REPORT INFORMATION
  Report Type: Spontaneous
  Country: US (occurrence: US)
  Receive Date: 20130524
  Receipt Date: 20130524
  Transmission Date: 20140414
  Serious: No
  Sender: FDA-Public Use
  Company Number: US-PFIZER INC-2013159879

PATIENT
  Age: 54 Year
  Sex: Female
  Weight: 61.22 kg

DRUGS (6)
  1. LYRICA [Suspect]
     Indication: FIBROMYALGIA
     Dosage: UNK
     Dates: start: 2012
  2. LYRICA [Interacting]
     Dosage: UNK
     Dates: start: 2012
  3. LYRICA [Interacting]
     Dosage: 50 MG, 2X/DAY
     Dates: start: 2013
  4. CLONAZEPAM [Interacting]
     Indication: ANXIETY
     Dosage: UNK
     Dates: start: 2006
  5. CLONAZEPAM [Interacting]
     Dosage: 0.5 MG, 1X/DAY
  6. AMBIEN [Interacting]
     Indication: SLEEP DISORDER
     Dosage: 10 MG, 1X/DAY

REACTIONS (8)
  - Dry mouth [Not Recovered/Not Resolved]
  - Drug interaction [Unknown]
  - Vision blurred [Not Recovered/Not Resolved]
  - Headache [Not Recovered/Not Resolved]
  - Memory impairment [Not Recovered/Not Resolved]
  - Somnolence [Not Recovered/Not Resolved]
  - Drug ineffective [Unknown]
  - Pain in extremity [Not Recovered/Not Resolved]
